FAERS Safety Report 16403699 (Version 1)
Quarter: 2019Q2

REPORT INFORMATION
  Report Type: Spontaneous
  Country: JP (occurrence: JP)
  Receive Date: 20190607
  Receipt Date: 20190607
  Transmission Date: 20190711
  Serious: Yes (Other)
  Sender: FDA-Public Use
  Company Number: JP-UCBSA-2019023974

PATIENT
  Age: 42 Year
  Sex: Female

DRUGS (2)
  1. XYZAL [Suspect]
     Active Substance: LEVOCETIRIZINE DIHYDROCHLORIDE
     Indication: PRODUCT USED FOR UNKNOWN INDICATION
     Dosage: 5 MG, QD,AFTER DINNER
     Route: 048
     Dates: start: 20190524, end: 20190524
  2. ASVERIN (TIPEPIDINE HIBENZATE) [Suspect]
     Active Substance: TIPEPIDINE HIBENZATE
     Indication: COUGH
     Dosage: 20 MG, TID, AFTER EVERY MEAL
     Route: 048
     Dates: start: 20190524, end: 20190524

REACTIONS (3)
  - Urticaria [Unknown]
  - Conjunctival hyperaemia [Recovering/Resolving]
  - Inappropriate schedule of product administration [Unknown]

NARRATIVE: CASE EVENT DATE: 201905
